FAERS Safety Report 11457659 (Version 1)
Quarter: 2015Q3

REPORT INFORMATION
  Report Type: Spontaneous
  Country: GB (occurrence: GB)
  Receive Date: 20150904
  Receipt Date: 20150904
  Transmission Date: 20151125
  Serious: Yes (Other)
  Sender: FDA-Public Use
  Company Number: GB-SA-2015SA133018

PATIENT
  Sex: Female

DRUGS (1)
  1. CEREZYME [Suspect]
     Active Substance: IMIGLUCERASE
     Route: 042

REACTIONS (5)
  - Dizziness [Unknown]
  - Gout [Unknown]
  - Blood pressure increased [Unknown]
  - Stress [Unknown]
  - Rheumatoid arthritis [Unknown]
